FAERS Safety Report 19272489 (Version 1)
Quarter: 2021Q2

REPORT INFORMATION
  Report Type: Spontaneous
  Country: US (occurrence: US)
  Receive Date: 20210519
  Receipt Date: 20210519
  Transmission Date: 20210717
  Serious: Yes (Other)
  Sender: FDA-Public Use
  Company Number: US-AMGEN-USASP2021073942

PATIENT
  Age: 55 Year
  Sex: Female

DRUGS (1)
  1. EVENITY [Suspect]
     Active Substance: ROMOSOZUMAB-AQQG
     Indication: OSTEOPOROSIS POSTMENOPAUSAL
     Dosage: UNK
     Route: 065
     Dates: start: 202104

REACTIONS (7)
  - Therapeutic response unexpected [Unknown]
  - Pain in extremity [Not Recovered/Not Resolved]
  - Musculoskeletal chest pain [Not Recovered/Not Resolved]
  - Facial paralysis [Not Recovered/Not Resolved]
  - Swelling face [Not Recovered/Not Resolved]
  - Arthralgia [Not Recovered/Not Resolved]
  - Groin pain [Not Recovered/Not Resolved]

NARRATIVE: CASE EVENT DATE: 2021
